FAERS Safety Report 5248130-9 (Version None)
Quarter: 2007Q1

REPORT INFORMATION
  Report Type: 
  Country: None (occurrence: None)
  Receive Date: 20070227
  Receipt Date: 20060206
  Transmission Date: 20070707
  Serious: No
  Sender: FDA-Public Use
  Company Number: US-BRISTOL-MYERS SQUIBB COMPANY-13273396

PATIENT
  Age: 63 Year
  Sex: Male
  Weight: 73 kg

DRUGS (6)
  1. GLUCOPHAGE [Suspect]
  2. LIPITOR [Concomitant]
  3. ZEBETA [Concomitant]
  4. ALTACE [Concomitant]
  5. CENTRUM SILVER [Concomitant]
  6. OMEGA-3 [Concomitant]

REACTIONS (1)
  - BLOOD GLUCOSE INCREASED [None]
